FAERS Safety Report 7577557-5 (Version None)
Quarter: 2011Q2

REPORT INFORMATION
  Report Type: 
  Country: None (occurrence: None)
  Receive Date: 20110628
  Receipt Date: 20110623
  Transmission Date: 20111010
  Serious: Yes (Hospitalization)
  Sender: FDA-Public Use
  Company Number: US-BRISTOL-MYERS SQUIBB COMPANY-15768922

PATIENT
  Age: 64 Year
  Sex: Female
  Weight: 35 kg

DRUGS (13)
  1. RITALIN [Concomitant]
     Route: 048
  2. POTASSIUM [Concomitant]
     Route: 065
  3. CETUXIMAB [Suspect]
     Indication: NON-SMALL CELL LUNG CANCER
     Dosage: LAST DOSE ON 10FEB2011. HELD ON 24-FEB-2011
     Route: 042
     Dates: start: 20110120
  4. COMPAZINE [Concomitant]
     Indication: NAUSEA
     Route: 048
  5. RITALIN [Concomitant]
     Route: 048
  6. VITAMIN B [Concomitant]
     Route: 065
  7. K-DUR [Concomitant]
     Route: 048
  8. MACROBID [Concomitant]
     Route: 048
  9. PACLITAXEL [Suspect]
     Indication: NON-SMALL CELL LUNG CANCER
     Dosage: LAST DOSE ON 10FEB2011. HELD ON 24-FEB-2011
     Route: 042
     Dates: start: 20110120
  10. CARBOPLATIN [Suspect]
     Indication: NON-SMALL CELL LUNG CANCER
     Dosage: LAST DOSE ON 10FEB2011. HELD ON 24-FEB-2011
     Route: 042
     Dates: start: 20110120
  11. MULTI-VITAMIN [Concomitant]
     Indication: MEDICAL DIET
     Route: 065
  12. NEULASTA [Concomitant]
     Indication: NEUTROPHIL COUNT DECREASED
     Route: 065
     Dates: start: 20110211, end: 20110211
  13. DEXAMETHASONE [Concomitant]
     Dosage: 4MG, 3 TABS NIGHT BEFORE CHEMO
     Route: 048

REACTIONS (1)
  - PANCYTOPENIA [None]
